FAERS Safety Report 4620694-5 (Version None)
Quarter: 2005Q1

REPORT INFORMATION
  Report Type: 
  Country: None (occurrence: None)
  Receive Date: 20050325
  Receipt Date: 20050309
  Transmission Date: 20050727
  Serious: Yes (Hospitalization)
  Sender: FDA-Public Use
  Company Number: TRP_0065_2005

PATIENT
  Age: 53 Year
  Sex: Female
  Weight: 87.5442 kg

DRUGS (8)
  1. RIBASPHERE [Suspect]
     Indication: HEPATITIS C
     Dosage: 1000 MG QDAY PO
     Route: 048
     Dates: start: 20041206, end: 20041223
  2. PEG-INTRON/PEGINTERFERON ALF-2B/SCHERING-PLOUGH [Suspect]
     Indication: HEPATITIS C
     Dosage: 120 MCG SC
     Route: 058
     Dates: start: 20041206, end: 20041223
  3. ALBUTEROL [Concomitant]
  4. ACIPHEX [Concomitant]
  5. LASIX [Concomitant]
  6. CHLORIDE [Concomitant]
  7. CARAFATE [Concomitant]
  8. RANITIDINE [Concomitant]

REACTIONS (10)
  - BILIARY SEPSIS [None]
  - CHOLELITHIASIS [None]
  - COMA [None]
  - DIARRHOEA [None]
  - GASTROINTESTINAL HAEMORRHAGE [None]
  - HAEMORRHAGE [None]
  - HEPATIC ENCEPHALOPATHY [None]
  - OESOPHAGEAL ULCER HAEMORRHAGE [None]
  - PANCREATITIS [None]
  - PLATELET COUNT DECREASED [None]
